FAERS Safety Report 11839193 (Version 2)
Quarter: 2016Q2

REPORT INFORMATION
  Report Type: Spontaneous
  Country: KR (occurrence: KR)
  Receive Date: 20151216
  Receipt Date: 20160505
  Transmission Date: 20160815
  Serious: Yes (Hospitalization, Other)
  Sender: FDA-Public Use
  Company Number: KR-009507513-1512KOR008113

PATIENT
  Age: 65 Year
  Sex: Male
  Weight: 72 kg

DRUGS (25)
  1. DEXAMETHASONE SODIUM PHOSPHATE. [Concomitant]
     Active Substance: DEXAMETHASONE SODIUM PHOSPHATE
     Dosage: 8 MG, QD
     Route: 042
     Dates: start: 20151120, end: 20151121
  2. BENZYDAMINE HYDROCHLORIDE [Concomitant]
     Active Substance: BENZYDAMINE HYDROCHLORIDE
     Indication: PROPHYLAXIS
     Dosage: 100 ML, TID
     Route: 050
     Dates: start: 20151113, end: 20151119
  3. TAMIPOOL [Concomitant]
     Active Substance: VITAMINS
     Indication: PROPHYLAXIS
     Dosage: 5 ML, QD
     Route: 042
     Dates: start: 20151113, end: 20151125
  4. PANTOLOC [Concomitant]
     Active Substance: PANTOPRAZOLE SODIUM
     Indication: PROPHYLAXIS AGAINST GASTROINTESTINAL ULCER
     Dosage: 200 MG, QD
     Route: 042
     Dates: start: 20151113, end: 20151116
  5. BUSCOPAN [Concomitant]
     Active Substance: BUTYLSCOPOLAMINE BROMIDE
     Indication: PREMEDICATION
     Dosage: 40 MG, QD
     Route: 042
     Dates: start: 20151117, end: 20151117
  6. FEROBA U [Concomitant]
     Indication: ANAEMIA PROPHYLAXIS
     Dosage: 512 MG, QD
     Route: 048
     Dates: start: 20151118
  7. PENIRAMIN [Concomitant]
     Indication: ALLERGY PROPHYLAXIS
     Dosage: 4 MG, QD
     Route: 042
     Dates: start: 20151125, end: 20151126
  8. CISPLAN [Concomitant]
     Active Substance: CISPLATIN
     Indication: GASTRIC CANCER
     Dosage: 128.8 MG, QD
     Route: 042
     Dates: start: 20151119, end: 20151119
  9. DEXAMETHASONE SODIUM PHOSPHATE. [Concomitant]
     Active Substance: DEXAMETHASONE SODIUM PHOSPHATE
     Indication: NEOPLASM MALIGNANT
     Dosage: 12 MG, ONCE
     Route: 042
     Dates: start: 20151119, end: 20151119
  10. DEXAMETHASONE. [Concomitant]
     Active Substance: DEXAMETHASONE
     Indication: NEOPLASM MALIGNANT
     Dosage: 8 MG, QD
     Route: 048
     Dates: start: 20151121, end: 20151121
  11. FURTMAN [Concomitant]
     Indication: PROPHYLAXIS
     Dosage: 0.5 ML, QD
     Route: 042
     Dates: start: 20151113, end: 20151125
  12. PERIOLIMEL N4E [Concomitant]
     Indication: PROPHYLAXIS
     Dosage: 1.5 L, QD
     Route: 042
     Dates: start: 20151113, end: 20151127
  13. SODIUM BICARBONATE. [Concomitant]
     Active Substance: SODIUM BICARBONATE
     Indication: PROPHYLAXIS
     Dosage: 8.4%, 1.68 G/ 20 ML
     Route: 042
     Dates: start: 20151119, end: 20151119
  14. GASOCOL [Concomitant]
     Indication: PROPHYLAXIS
     Dosage: 20 ML, QD
     Route: 048
     Dates: start: 20151117, end: 20151117
  15. ALOXI [Concomitant]
     Active Substance: PALONOSETRON HYDROCHLORIDE
     Indication: NEOPLASM MALIGNANT
     Dosage: 0.25 MG, QD
     Route: 042
     Dates: start: 20151119, end: 20151119
  16. DIPEPTIVEN [Concomitant]
     Active Substance: GLUTAMINE
     Indication: PROPHYLAXIS
     Dosage: 20 G, QD
     Route: 042
     Dates: start: 20151113, end: 20151125
  17. MASI [Concomitant]
     Indication: PROPHYLAXIS
     Dosage: 10%, 2G/20 ML; 2 G, QD
     Route: 042
     Dates: start: 20151119, end: 20151119
  18. LASIX [Concomitant]
     Active Substance: FUROSEMIDE
     Indication: PROPHYLAXIS
     Dosage: 40 MG, QD
     Route: 048
     Dates: start: 20151119, end: 20151119
  19. SAMA TANTUM GARGLE [Concomitant]
     Active Substance: BENZYDAMINE HYDROCHLORIDE
     Indication: PROPHYLAXIS
     Dosage: 100 ML, TID
     Dates: start: 20151113, end: 20151119
  20. EPS [Concomitant]
     Indication: GASTRIC CANCER
     Dosage: 184 MG, QD
     Route: 042
     Dates: start: 20151119, end: 20151119
  21. PANTOLOC [Concomitant]
     Active Substance: PANTOPRAZOLE SODIUM
     Dosage: 40 MG, QD
     Route: 042
     Dates: start: 20151116, end: 20151121
  22. THIAMINE HYDROCHLORIDE. [Concomitant]
     Active Substance: THIAMINE HYDROCHLORIDE
     Indication: SUPPLEMENTATION THERAPY
     Dosage: 50 MG, QD
     Route: 042
     Dates: start: 20151113, end: 20151125
  23. EMEND (FOSAPREPITANT DIMEGLUMINE) [Suspect]
     Active Substance: FOSAPREPITANT DIMEGLUMINE
     Indication: PROPHYLAXIS OF NAUSEA AND VOMITING
     Dosage: 150 MG, ONCE
     Route: 042
     Dates: start: 20151119, end: 20151119
  24. ZINC SULFATE [Concomitant]
     Active Substance: ZINC SULFATE\ZINC SULFATE ANHYDROUS
     Indication: SUPPLEMENTATION THERAPY
     Dosage: 10 MG, QD
     Route: 042
     Dates: start: 20151113, end: 20151125
  25. SELENASE T [Concomitant]
     Indication: SUPPLEMENTATION THERAPY
     Dosage: 500 MICROGRAM, QD
     Route: 042
     Dates: start: 20151113, end: 20151125

REACTIONS (1)
  - Melaena [Recovered/Resolved]

NARRATIVE: CASE EVENT DATE: 20151125
